FAERS Safety Report 7392095-0 (Version None)
Quarter: 2011Q2

REPORT INFORMATION
  Report Type: 
  Country: None (occurrence: None)
  Receive Date: 20110404
  Receipt Date: 20110325
  Transmission Date: 20111010
  Serious: Yes (Hospitalization)
  Sender: FDA-Public Use
  Company Number: A0773176A

PATIENT
  Age: 55 Year
  Sex: Male
  Weight: 96.4 kg

DRUGS (12)
  1. AMARYL [Concomitant]
  2. METOPROLOL [Concomitant]
  3. LODINE [Concomitant]
  4. METOPROLOL [Concomitant]
  5. BEXTRA [Concomitant]
  6. PRANDIN [Concomitant]
  7. LIPITOR [Concomitant]
  8. AVANDIA [Suspect]
     Indication: DIABETES MELLITUS
     Dosage: 8MG PER DAY
     Route: 048
     Dates: start: 20030101, end: 20060101
  9. PAXIL [Concomitant]
  10. METFORMIN HCL [Concomitant]
  11. LOVAZA [Concomitant]
  12. ULTRACET [Concomitant]

REACTIONS (2)
  - ACUTE CORONARY SYNDROME [None]
  - MYOCARDIAL INFARCTION [None]
